FAERS Safety Report 15808310 (Version 1)
Quarter: 2019Q1

REPORT INFORMATION
  Report Type: Report from Study
  Country: US (occurrence: US)
  Receive Date: 20190110
  Receipt Date: 20190110
  Transmission Date: 20190417
  Serious: Yes (Death)
  Sender: FDA-Public Use
  Company Number: US-ADAMAS PHARMA, LLC-2018ADA02778

PATIENT
  Age: 79 Year
  Sex: Male
  Weight: 78.91 kg

DRUGS (19)
  1. GOCOVRI [Suspect]
     Active Substance: AMANTADINE
     Dosage: 137 MG, 1X/DAY AT NIGHT
     Route: 048
     Dates: start: 201811, end: 2018
  2. RASAGILINE. [Concomitant]
     Active Substance: RASAGILINE
  3. CARBIDOPA/LEVODOPA [Concomitant]
     Active Substance: CARBIDOPA\LEVODOPA
  4. RIVASTIGMINE. [Concomitant]
     Active Substance: RIVASTIGMINE
  5. GOCOVRI [Suspect]
     Active Substance: AMANTADINE
     Indication: DYSKINESIA
     Dosage: 137 MG, 1X/DAY AT NIGHT
     Route: 048
     Dates: start: 20181023, end: 20181029
  6. HYDROCO/APAP [Concomitant]
     Active Substance: ACETAMINOPHEN\HYDROCODONE
  7. ALBUTEROL. [Concomitant]
     Active Substance: ALBUTEROL
  8. GOCOVRI [Suspect]
     Active Substance: AMANTADINE
     Dosage: 274 MG, 1X/DAY AT NIGHT
     Route: 048
     Dates: start: 20181030, end: 201811
  9. ALENDRONATE [Concomitant]
     Active Substance: ALENDRONATE SODIUM
  10. GOCOVRI [Suspect]
     Active Substance: AMANTADINE
     Dosage: 137 MG, 1X/DAY AT NIGHT
     Route: 048
     Dates: start: 201811, end: 201811
  11. MIRAPEX [Suspect]
     Active Substance: PRAMIPEXOLE DIHYDROCHLORIDE
     Dosage: UNK
     Dates: end: 201811
  12. MIRAPEX [Suspect]
     Active Substance: PRAMIPEXOLE DIHYDROCHLORIDE
     Dosage: UNK
     Dates: start: 201811
  13. FUROSEMIDE. [Concomitant]
     Active Substance: FUROSEMIDE
  14. DULOXETINE. [Concomitant]
     Active Substance: DULOXETINE
  15. GOCOVRI [Suspect]
     Active Substance: AMANTADINE
     Dosage: 274 MG, 1X/DAY AT NIGHT
     Route: 048
     Dates: start: 201811, end: 201811
  16. LISINOPRIL. [Concomitant]
     Active Substance: LISINOPRIL
  17. TAMSULOSIN [Concomitant]
     Active Substance: TAMSULOSIN
  18. LEVOTHYROXINE. [Concomitant]
     Active Substance: LEVOTHYROXINE
  19. LEVETIRACETAM. [Concomitant]
     Active Substance: LEVETIRACETAM

REACTIONS (6)
  - Depression [Recovering/Resolving]
  - Gait inability [Not Recovered/Not Resolved]
  - Intentional underdose [Not Recovered/Not Resolved]
  - Death [Fatal]
  - Hallucination, visual [Recovering/Resolving]
  - Somnolence [Recovering/Resolving]

NARRATIVE: CASE EVENT DATE: 2018
